FAERS Safety Report 7265440-4 (Version None)
Quarter: 2011Q1

REPORT INFORMATION
  Report Type: 
  Country: None (occurrence: None)
  Receive Date: 20110131
  Receipt Date: 20110119
  Transmission Date: 20110831
  Serious: Yes (Other)
  Sender: FDA-Public Use
  Company Number: PHHY2011IL04897

PATIENT
  Age: 70 Year
  Sex: Female
  Weight: 70 kg

DRUGS (3)
  1. ACLASTA [Suspect]
     Indication: OSTEOPOROSIS
     Dosage: UNK
     Dates: start: 20110117
  2. ENALAPRIL MALEATE [Concomitant]
  3. OMEPRADEX [Concomitant]

REACTIONS (7)
  - UPPER LIMB FRACTURE [None]
  - RASH [None]
  - ABDOMINAL PAIN [None]
  - VOMITING [None]
  - FALL [None]
  - HEADACHE [None]
  - NAUSEA [None]
